FAERS Safety Report 9238143 (Version 1)
Quarter: 2013Q1

REPORT INFORMATION
  Report Type: Spontaneous
  Country: US (occurrence: None)
  Receive Date: 20121106
  Receipt Date: 20121106
  Transmission Date: 20140127
  Serious: No
  Sender: FDA-Public Use
  Company Number: 1000038053

PATIENT
  Sex: Female

DRUGS (3)
  1. DALIRESP (ROFLUMILAST) (500 MICROGRAM, TABLETS) [Suspect]
     Indication: CHRONIC OBSTRUCTIVE PULMONARY DISEASE
     Dosage: 500 MCG (500 MCG, 1 IN 1 D), ORAL
     Dates: start: 201208
  2. ERYTHROMYCIN (ERYTHROMYCIN) (ERYTHROMYCIN) [Concomitant]
  3. PRIMIDONE (PRIMODONE) (PRIMODONE) [Concomitant]

REACTIONS (1)
  - Lung disorder [None]
